FAERS Safety Report 4691859-1 (Version None)
Quarter: 2005Q2

REPORT INFORMATION
  Report Type: 
  Country: None (occurrence: None)
  Receive Date: 20050614
  Receipt Date: 20050614
  Transmission Date: 20051028
  Serious: Yes (Disabling)
  Sender: FDA-Public Use
  Company Number: None

PATIENT
  Age: 44 Year
  Sex: Female
  Weight: 54.4316 kg

DRUGS (1)
  1. TRIFLUOROPERAZINE (HAS  SHORT HALF-LIFE, TOOK AT NIGHT ONLY) [Suspect]
     Indication: POST-TRAUMATIC STRESS DISORDER
     Dosage: 10 MGS

REACTIONS (4)
  - BRAIN DAMAGE [None]
  - HEADACHE [None]
  - IRRITABILITY [None]
  - PSYCHOMOTOR HYPERACTIVITY [None]
